FAERS Safety Report 6554518-6 (Version None)
Quarter: 2010Q1

REPORT INFORMATION
  Report Type: 
  Country: None (occurrence: None)
  Receive Date: 20100127
  Receipt Date: 20100113
  Transmission Date: 20100710
  Serious: Yes (Other)
  Sender: FDA-Public Use
  Company Number: GB-MYLANLABS-2010S1000630

PATIENT
  Sex: Male

DRUGS (2)
  1. SELEGILINE HCL [Suspect]
     Indication: PARKINSON'S DISEASE
  2. PRAMIPEXOLE DIHYDROCHLORIDE [Suspect]
     Indication: PARKINSON'S DISEASE

REACTIONS (4)
  - DEPRESSED MOOD [None]
  - FATIGUE [None]
  - GENDER IDENTITY DISORDER [None]
  - SELF ESTEEM DECREASED [None]
